FAERS Safety Report 6192020-4 (Version None)
Quarter: 2009Q2

REPORT INFORMATION
  Report Type: 
  Country: None (occurrence: None)
  Receive Date: 20090515
  Receipt Date: 20090508
  Transmission Date: 20091009
  Serious: Yes (Hospitalization, Other)
  Sender: FDA-Public Use
  Company Number: CA-ABBOTT-09P-028-0572225-00

PATIENT
  Sex: Female
  Weight: 55.388 kg

DRUGS (1)
  1. HUMIRA [Suspect]
     Indication: CROHN'S DISEASE
     Route: 058
     Dates: start: 20080403

REACTIONS (4)
  - ACNE [None]
  - DIARRHOEA [None]
  - LOCALISED OEDEMA [None]
  - PAIN [None]
